FAERS Safety Report 16890679 (Version 1)
Quarter: 2019Q4

REPORT INFORMATION
  Report Type: Spontaneous
  Country: US (occurrence: US)
  Receive Date: 20190812
  Receipt Date: 20190812
  Transmission Date: 20200122
  Serious: No
  Sender: FDA-Public Use
  Company Number: None

PATIENT
  Age: 55 Year
  Sex: Female

DRUGS (1)
  1. ZORTRESS [Suspect]
     Active Substance: EVEROLIMUS
     Dates: start: 20190529, end: 20190720

REACTIONS (2)
  - Oral mucosal blistering [None]
  - Stomatitis [None]

NARRATIVE: CASE EVENT DATE: 20190620
